FAERS Safety Report 7327754-9 (Version None)
Quarter: 2011Q1

REPORT INFORMATION
  Report Type: 
  Country: None (occurrence: None)
  Receive Date: 20110216
  Receipt Date: 20110209
  Transmission Date: 20110831
  Serious: No
  Sender: FDA-Public Use
  Company Number: WAES 1101USA03460

PATIENT
  Age: 21 Year
  Sex: Male
  Weight: 66.2252 kg

DRUGS (6)
  1. TAB DARUNAVIR 400 MG [Suspect]
     Indication: HIV INFECTION
     Dosage: 400 MG, BID, PO
     Route: 048
     Dates: start: 20100506
  2. AZITHROMYCIN [Concomitant]
  3. VALACYCLOVIR HYDROCHLORIDE [Concomitant]
  4. EMTRICITABINE AND TENOFOVIR DISOPROXIL FUMARATE [Suspect]
     Indication: HIV INFECTION
     Dosage: 200 MG-300
     Dates: start: 20100506
  5. RITONAVIR [Suspect]
     Indication: HIV INFECTION
     Dosage: 100 MG, DAILY, PO
     Route: 048
     Dates: start: 20100506
  6. ALBUTEROL SULFATE [Concomitant]

REACTIONS (4)
  - SUBCUTANEOUS ABSCESS [None]
  - BACTERIAL TEST POSITIVE [None]
  - PERIRECTAL ABSCESS [None]
  - SYPHILIS [None]
